FAERS Safety Report 4717101-0 (Version None)
Quarter: 2005Q3

REPORT INFORMATION
  Report Type: 
  Country: None (occurrence: None)
  Receive Date: 20050715
  Receipt Date: 20050701
  Transmission Date: 20060218
  Serious: Yes (Hospitalization)
  Sender: FDA-Public Use
  Company Number: 26886

PATIENT
  Age: 72 Year
  Sex: Male

DRUGS (5)
  1. TAMBOCOR [Suspect]
     Indication: ATRIAL FIBRILLATION
     Route: 048
     Dates: start: 20050201, end: 20050522
  2. SOTALEX [Suspect]
     Indication: ATRIAL FIBRILLATION
     Route: 048
     Dates: start: 20050201, end: 20050522
  3. COZAAR [Concomitant]
  4. EUTHYROX [Concomitant]
  5. COUMADIN [Concomitant]

REACTIONS (4)
  - BRADYCARDIA [None]
  - HYPOTENSION [None]
  - MALAISE [None]
  - PALLOR [None]
